FAERS Safety Report 6934924-8 (Version None)
Quarter: 2010Q3

REPORT INFORMATION
  Report Type: 
  Country: None (occurrence: None)
  Receive Date: 20100821
  Receipt Date: 20100810
  Transmission Date: 20110219
  Serious: Yes (Other)
  Sender: FDA-Public Use
  Company Number: CHPA2010US12846

PATIENT
  Age: 52 Year
  Sex: Female
  Weight: 68.027 kg

DRUGS (1)
  1. VOLTAREN [Suspect]
     Indication: VARICOSE VEIN
     Dosage: UNK, ONCE A DAY
     Route: 061
     Dates: start: 20100301, end: 20100803

REACTIONS (6)
  - BLISTER [None]
  - DRUG HYPERSENSITIVITY [None]
  - OEDEMA PERIPHERAL [None]
  - OFF LABEL USE [None]
  - SOFT TISSUE INJURY [None]
  - WRONG TECHNIQUE IN DRUG USAGE PROCESS [None]
